FAERS Safety Report 18613299 (Version 1)
Quarter: 2020Q4

REPORT INFORMATION
  Report Type: Spontaneous
  Country: US (occurrence: US)
  Receive Date: 20201214
  Receipt Date: 20201214
  Transmission Date: 20210114
  Serious: Yes (Other)
  Sender: FDA-Public Use
  Company Number: US-NOVOPROD-697408

PATIENT
  Age: 65 Year
  Sex: Female
  Weight: 92.99 kg

DRUGS (3)
  1. LEVEMIR [Suspect]
     Active Substance: INSULIN DETEMIR
     Dosage: UNK
     Route: 058
     Dates: start: 201810
  2. LEVEMIR [Suspect]
     Active Substance: INSULIN DETEMIR
     Indication: DIABETES MELLITUS
     Dosage: UNK
     Route: 058
     Dates: start: 2017, end: 201806
  3. NOVOLIN R [Concomitant]
     Active Substance: INSULIN HUMAN
     Indication: DIABETES MELLITUS
     Dosage: UNK
     Route: 058

REACTIONS (7)
  - Weight decreased [Unknown]
  - Injection site pain [Not Recovered/Not Resolved]
  - Hypotension [Unknown]
  - Blood glucose increased [Recovered/Resolved]
  - Blood glucose increased [Not Recovered/Not Resolved]
  - Hypertension [Unknown]
  - Intentional dose omission [Unknown]

NARRATIVE: CASE EVENT DATE: 2017
